FAERS Safety Report 13485360 (Version 1)
Quarter: 2017Q2

REPORT INFORMATION
  Report Type: Spontaneous
  Country: GB (occurrence: GB)
  Receive Date: 20170426
  Receipt Date: 20170426
  Transmission Date: 20170830
  Serious: Yes (Hospitalization)
  Sender: FDA-Public Use
  Company Number: GB-009507513-1704GBR012945

PATIENT
  Age: 85 Year
  Sex: Male
  Weight: 57 kg

DRUGS (2)
  1. DEXAMETHASONE. [Suspect]
     Active Substance: DEXAMETHASONE
     Indication: RHEUMATOID ARTHRITIS
     Dosage: 2 MG, ONE IN TWO DAYS (2 MG, 1 IN 2 D)
     Route: 048
  2. OXYCONTIN [Suspect]
     Active Substance: OXYCODONE HYDROCHLORIDE
     Indication: CANCER PAIN
     Dosage: 15 MG TWICE DAILY, 2 IN 1 D
     Route: 048

REACTIONS (3)
  - Toxicity to various agents [Recovering/Resolving]
  - White blood cell count increased [Recovering/Resolving]
  - Confusional state [Recovering/Resolving]
